FAERS Safety Report 9027203 (Version 1)
Quarter: 2013Q1

REPORT INFORMATION
  Report Type: Spontaneous
  Country: US (occurrence: US)
  Receive Date: 20130123
  Receipt Date: 20130123
  Transmission Date: 20140127
  Serious: No
  Sender: FDA-Public Use
  Company Number: US-OPTIMER PHARMACEUTICALS, INC.-20120094

PATIENT
  Age: 51 Year
  Sex: Male
  Weight: 116.1 kg

DRUGS (16)
  1. DIFICID [Suspect]
     Indication: CLOSTRIDIUM DIFFICILE COLITIS
     Dosage: 200 MG, BID
     Route: 048
     Dates: start: 201206, end: 2012
  2. DIFICID [Interacting]
     Dosage: 200 MG, BID
     Route: 048
     Dates: start: 20120706, end: 20120715
  3. DIFICID [Interacting]
     Dosage: 200 MG, BID
     Route: 048
     Dates: start: 20120810, end: 201208
  4. DIFICID [Interacting]
     Dosage: UNK
     Route: 065
     Dates: start: 2012, end: 2012
  5. OMEPRAZOLE [Interacting]
     Indication: DYSPEPSIA
     Dosage: UNK
     Route: 048
     Dates: end: 20120809
  6. KEFLEX [Concomitant]
     Indication: PRODUCT USED FOR UNKNOWN INDICATION
     Dosage: UNK
     Dates: start: 2012, end: 2012
  7. QUESTRAN LIGHT [Concomitant]
     Indication: DIARRHOEA
     Dosage: UNK BID
     Dates: start: 20120503
  8. PHENOBARBITAL [Concomitant]
     Indication: CONVULSION
     Dosage: 200 MG, BID
     Route: 048
  9. HYDROCODONE W/ACETAMINOPHEN [Concomitant]
     Indication: BACK PAIN
     Dosage: 10 MG/325 MG, 5/DAY
     Route: 048
     Dates: start: 201205
  10. RANITIDINE [Concomitant]
     Indication: DYSPEPSIA
     Dosage: 150, QD
     Route: 048
     Dates: start: 1991
  11. RANITIDINE [Concomitant]
     Indication: ULCER
  12. TEMAZEPAM [Concomitant]
     Indication: SLEEP DISORDER
     Dosage: UNK
     Route: 048
  13. LOMOTIL [Concomitant]
     Indication: CROHN^S DISEASE
     Dosage: 0.25 MG, PRN
     Route: 048
     Dates: start: 1991
  14. SOMA [Concomitant]
     Indication: MUSCLE RELAXANT THERAPY
     Dosage: 350 MG, TID
     Route: 048
     Dates: start: 1991
  15. FLORAJEN 3 [Concomitant]
     Dosage: UNK, TID
     Dates: start: 201202
  16. CLONAZEPAM [Concomitant]
     Indication: ANXIETY
     Dosage: 1 MG, QID
     Route: 048
     Dates: start: 1980

REACTIONS (10)
  - Crohn^s disease [Recovered/Resolved]
  - Electrolyte imbalance [Recovered/Resolved]
  - Clostridium difficile infection [Not Recovered/Not Resolved]
  - Disease recurrence [Not Recovered/Not Resolved]
  - Diarrhoea [Not Recovered/Not Resolved]
  - Abdominal distension [Recovered/Resolved]
  - Abdominal pain [Not Recovered/Not Resolved]
  - Weight decreased [Unknown]
  - Inhibitory drug interaction [Unknown]
  - Drug ineffective [Unknown]
